FAERS Safety Report 10899546 (Version 3)
Quarter: 2015Q2

REPORT INFORMATION
  Report Type: Report from Study
  Country: US (occurrence: US)
  Receive Date: 20150309
  Receipt Date: 20150417
  Transmission Date: 20150821
  Serious: Yes (Death, Hospitalization)
  Sender: FDA-Public Use
  Company Number: US-ACTELION-A-US2015-113928

PATIENT
  Age: 76 Year
  Sex: Female

DRUGS (6)
  1. LOVENOX [Concomitant]
     Active Substance: ENOXAPARIN SODIUM
  2. ADCIRCA [Concomitant]
     Active Substance: TADALAFIL
  3. ASPIRIN. [Concomitant]
     Active Substance: ASPIRIN
  4. MACITENTAN [Suspect]
     Active Substance: MACITENTAN
     Indication: PULMONARY ARTERIAL HYPERTENSION
     Dosage: 10 MG,
     Route: 048
     Dates: start: 20141212
  5. TREPROSTINIL DIOLAMIN [Concomitant]
     Active Substance: TREPROSTINIL DIOLAMINE
  6. SILDENAFIL. [Concomitant]
     Active Substance: SILDENAFIL

REACTIONS (2)
  - Pneumonia [Unknown]
  - Death [Fatal]

NARRATIVE: CASE EVENT DATE: 201504
